FAERS Safety Report 9681278 (Version 1)
Quarter: 2013Q4

REPORT INFORMATION
  Report Type: Spontaneous
  Country: FR (occurrence: FR)
  Receive Date: 20131111
  Receipt Date: 20131111
  Transmission Date: 20140711
  Serious: Yes (Hospitalization)
  Sender: FDA-Public Use
  Company Number: FR-PFIZER INC-2013315675

PATIENT
  Age: 56 Year
  Sex: Male

DRUGS (6)
  1. TRIFLUCAN [Suspect]
     Indication: CROHN^S DISEASE
     Dosage: UNK
     Route: 048
     Dates: start: 20130928, end: 20131003
  2. FLAGYL [Suspect]
     Indication: CROHN^S DISEASE
     Dosage: 500 MG, 1X/DAY
     Route: 048
     Dates: start: 20130928, end: 20131003
  3. ENTOCORT [Suspect]
     Indication: CROHN^S DISEASE
     Dosage: 3 MG, 1X/DAY
     Route: 048
     Dates: start: 20130928, end: 20131003
  4. SMECTA [Suspect]
     Indication: CROHN^S DISEASE
     Dosage: 1 DF, 1X/DAY
     Route: 048
     Dates: start: 20130928, end: 20131003
  5. TOBREX [Suspect]
     Indication: FOREIGN BODY IN EYE
     Dosage: UNK
     Route: 047
     Dates: start: 20130930, end: 20131003
  6. VITAMIN A [Suspect]
     Indication: FOREIGN BODY IN EYE
     Dosage: UNK
     Route: 047
     Dates: start: 20130930, end: 20131003

REACTIONS (2)
  - Dermatitis exfoliative [Recovering/Resolving]
  - Febrile convulsion [Recovered/Resolved]
